FAERS Safety Report 4435372-5 (Version None)
Quarter: 2004Q3

REPORT INFORMATION
  Report Type: 
  Country: None (occurrence: None)
  Receive Date: 20040826
  Receipt Date: 19930407
  Transmission Date: 20050211
  Serious: Yes (Hospitalization, Disabling)
  Sender: FDA-Public Use
  Company Number: 2004228982JP

PATIENT
  Age: 84 Year
  Sex: Female
  Weight: 45 kg

DRUGS (9)
  1. EPIRUBICIN [Suspect]
     Indication: BLADDER CANCER
     Dosage: 30 MG, CYCLIC, INTRAVESICULAR
     Route: 043
     Dates: start: 19930215, end: 19930301
  2. TRICHLOMETHIAZIDE (TRICHLORMETHIAZIDE) [Concomitant]
  3. BENIDIPINE HYDROCHLORIDE (BENIDIPINE HYDROCHLORIDE) [Concomitant]
  4. ASPARTATE POTASSIUM (ASPARTATE POTASSIUM) [Concomitant]
  5. CRATAGEUS (CRATAEGUS) [Concomitant]
  6. DIPYRIDAMOLE [Concomitant]
  7. TOSUFLOXACIN TOSILATE (TOSUFLOXACIN TOSILATE) [Concomitant]
  8. AZULENE (AZULENE) [Concomitant]
  9. AMINO ACIDS [Concomitant]

REACTIONS (1)
  - CEREBRAL INFARCTION [None]
